FAERS Safety Report 21384142 (Version 1)
Quarter: 2022Q3

REPORT INFORMATION
  Report Type: Spontaneous
  Country: DE (occurrence: DE)
  Receive Date: 20220928
  Receipt Date: 20220928
  Transmission Date: 20221027
  Serious: Yes (Hospitalization, Other)
  Sender: FDA-Public Use
  Company Number: None

PATIENT
  Age: 56 Year
  Sex: Female
  Weight: 78 kg

DRUGS (1)
  1. VENLAFAXINE HYDROCHLORIDE [Suspect]
     Active Substance: VENLAFAXINE HYDROCHLORIDE
     Dosage: 150 MG, 1-0-0-0, RETARD-KAPSELN
     Route: 048

REACTIONS (7)
  - Melaena [Unknown]
  - Gastritis erosive [Unknown]
  - Abdominal pain [Unknown]
  - Abdominal pain upper [Unknown]
  - Dyspepsia [Unknown]
  - Cholecystitis [Unknown]
  - Gastrointestinal haemorrhage [Unknown]
